FAERS Safety Report 9475871 (Version 2)
Quarter: 2013Q4

REPORT INFORMATION
  Report Type: Spontaneous
  Country: US (occurrence: US)
  Receive Date: 20130826
  Receipt Date: 20131220
  Transmission Date: 20140711
  Serious: Yes (Hospitalization)
  Sender: FDA-Public Use
  Company Number: US-BIOGENIDEC-2013BI078585

PATIENT
  Age: 61 Year
  Sex: Female

DRUGS (1)
  1. AVONEX [Suspect]
     Indication: MULTIPLE SCLEROSIS
     Route: 030
     Dates: start: 20090301

REACTIONS (5)
  - Gangrene [Recovered/Resolved]
  - Abasia [Not Recovered/Not Resolved]
  - Musculoskeletal disorder [Recovered/Resolved]
  - Pain in extremity [Not Recovered/Not Resolved]
  - Diabetes mellitus [Not Recovered/Not Resolved]
